FAERS Safety Report 9885262 (Version 1)
Quarter: 2014Q1

REPORT INFORMATION
  Report Type: Spontaneous
  Country: US (occurrence: None)
  Receive Date: 20140207
  Receipt Date: 20140207
  Transmission Date: 20141002
  Serious: Yes (Other)
  Sender: FDA-Public Use
  Company Number: None

PATIENT
  Age: 68 Year
  Sex: Male

DRUGS (2)
  1. AFINITOR [Suspect]
     Route: 048
     Dates: start: 20131017, end: 20140130
  2. AFINITOR [Suspect]
     Route: 048
     Dates: start: 20131017, end: 20140130

REACTIONS (2)
  - Anaemia [None]
  - Asthenia [None]
